FAERS Safety Report 6858529-2 (Version None)
Quarter: 2010Q3

REPORT INFORMATION
  Report Type: 
  Country: None (occurrence: None)
  Receive Date: 20100719
  Receipt Date: 20080222
  Transmission Date: 20110219
  Serious: Yes (Other)
  Sender: FDA-Public Use
  Company Number: US-PFIZER INC-2008013002

PATIENT
  Sex: Male
  Weight: 88.6 kg

DRUGS (2)
  1. CHANTIX [Suspect]
     Indication: SMOKING CESSATION THERAPY
     Dates: start: 20080101, end: 20080202
  2. VYTORIN [Concomitant]

REACTIONS (4)
  - FEELING ABNORMAL [None]
  - MALAISE [None]
  - MEDICATION ERROR [None]
  - SUICIDAL IDEATION [None]
